FAERS Safety Report 5939793-0 (Version None)
Quarter: 2008Q4

REPORT INFORMATION
  Report Type: 
  Country: None (occurrence: None)
  Receive Date: 20081030
  Receipt Date: 20081030
  Transmission Date: 20090506
  Serious: Yes (Other)
  Sender: FDA-Public Use
  Company Number: None

PATIENT
  Age: 77 Year
  Sex: Male
  Weight: 78.9259 kg

DRUGS (1)
  1. TARCEVA [Suspect]
     Dosage: 150MG DAILY PO
     Route: 048
     Dates: start: 20081013, end: 20081027

REACTIONS (2)
  - COUGH [None]
  - DERMATITIS ACNEIFORM [None]
